FAERS Safety Report 19064120 (Version 2)
Quarter: 2021Q2

REPORT INFORMATION
  Report Type: Spontaneous
  Country: US (occurrence: US)
  Receive Date: 20210326
  Receipt Date: 20210521
  Transmission Date: 20210717
  Serious: Yes (Other)
  Sender: FDA-Public Use
  Company Number: US-PFIZER INC-2020232958

PATIENT
  Age: 90 Year
  Sex: Male
  Weight: 49.71 kg

DRUGS (1)
  1. ARTHROTEC [Suspect]
     Active Substance: DICLOFENAC SODIUM\MISOPROSTOL
     Dosage: 75 MG / 200 MG

REACTIONS (6)
  - Anaemia [Unknown]
  - Depression [Unknown]
  - Off label use [Unknown]
  - Aortic valve incompetence [Unknown]
  - Dementia [Unknown]
  - Arthritis [Unknown]
